FAERS Safety Report 10167899 (Version 1)
Quarter: 2014Q2

REPORT INFORMATION
  Report Type: Spontaneous
  Country: BE (occurrence: BE)
  Receive Date: 20140512
  Receipt Date: 20140512
  Transmission Date: 20141212
  Serious: Yes (Disabling)
  Sender: FDA-Public Use
  Company Number: BE-ABBVIE-14P-013-1236280-00

PATIENT
  Age: 89 Year
  Sex: Female

DRUGS (8)
  1. LIPANTHYLNANO [Suspect]
     Indication: HYPERCHOLESTEROLAEMIA
     Route: 048
  2. PRADAXA [Suspect]
     Indication: ATRIAL FIBRILLATION
     Route: 048
     Dates: start: 201403
  3. EMCONCOR [Suspect]
     Indication: CARDIAC FAILURE
     Route: 048
  4. EMCONCOR [Suspect]
     Indication: ATRIAL FIBRILLATION
  5. NEXIUM [Concomitant]
     Indication: GASTRIC ULCER
     Route: 048
  6. LOSARTAN [Concomitant]
     Indication: CARDIAC FAILURE
     Route: 048
  7. LOSARTAN [Concomitant]
     Indication: HYPERTENSION
  8. BURINEX [Concomitant]
     Indication: CARDIAC FAILURE
     Route: 048

REACTIONS (1)
  - Hypoglycaemia [Recovering/Resolving]
